FAERS Safety Report 20670891 (Version 1)
Quarter: 2022Q2

REPORT INFORMATION
  Report Type: Spontaneous
  Country: US (occurrence: US)
  Receive Date: 20220404
  Receipt Date: 20220404
  Transmission Date: 20220720
  Serious: No
  Sender: FDA-Public Use
  Company Number: US-PFIZER INC-202101176913

PATIENT
  Age: 56 Year
  Sex: Female

DRUGS (1)
  1. IBRANCE [Suspect]
     Active Substance: PALBOCICLIB
     Dosage: 125 MG
     Dates: start: 20210824

REACTIONS (4)
  - Fatigue [Not Recovered/Not Resolved]
  - Glossodynia [Unknown]
  - Taste disorder [Unknown]
  - Somnolence [Not Recovered/Not Resolved]
